FAERS Safety Report 9555841 (Version 2)
Quarter: 2013Q3

REPORT INFORMATION
  Report Type: Spontaneous
  Country: DE (occurrence: DE)
  Receive Date: 20130926
  Receipt Date: 20130926
  Transmission Date: 20140515
  Serious: Yes (Death, Hospitalization, Other)
  Sender: FDA-Public Use
  Company Number: DE-JNJFOC-20130804338

PATIENT
  Age: 82 Year
  Sex: Female
  Weight: 79 kg

DRUGS (7)
  1. XARELTO [Suspect]
     Indication: THROMBOSIS
     Route: 048
     Dates: start: 20130617
  2. BISOPROLOL FUMARATE [Concomitant]
     Indication: HYPERTENSION
     Route: 065
  3. CANDESARTAN [Concomitant]
     Indication: HYPERTENSION
     Route: 065
  4. SIMVASTATIN [Concomitant]
     Route: 065
  5. PANTOPRAZOLE [Concomitant]
     Route: 065
  6. CARBAMAZEPIN [Concomitant]
     Indication: EPILEPSY
     Route: 065
  7. CEFPODOXIME [Concomitant]
     Indication: PNEUMONIA
     Route: 065
     Dates: end: 20130606

REACTIONS (4)
  - Brain hypoxia [Fatal]
  - Cerebral haemorrhage [Fatal]
  - Quadriplegia [Unknown]
  - Brain oedema [Unknown]
